FAERS Safety Report 4845315-8 (Version None)
Quarter: 2005Q4

REPORT INFORMATION
  Report Type: 
  Country: None (occurrence: None)
  Receive Date: 20051205
  Receipt Date: 20051117
  Transmission Date: 20060501
  Serious: Yes (Hospitalization)
  Sender: FDA-Public Use
  Company Number: JP-GLAXOSMITHKLINE-B0401204A

PATIENT
  Sex: Male

DRUGS (12)
  1. EPIVIR [Suspect]
     Indication: HIV INFECTION
     Dosage: 300MG PER DAY
     Route: 048
     Dates: start: 19960807
  2. ZIAGEN [Suspect]
     Indication: HIV INFECTION
     Dosage: 300MG TWICE PER DAY
     Route: 048
     Dates: start: 20041013
  3. STOCRIN [Suspect]
     Indication: HIV INFECTION
     Dosage: 600MG PER DAY
     Route: 048
     Dates: start: 20020703, end: 20041012
  4. VIDEX EC [Concomitant]
     Indication: HIV INFECTION
     Dosage: 250MG PER DAY
     Route: 048
     Dates: start: 20020703, end: 20041012
  5. KALETRA [Concomitant]
     Indication: HIV INFECTION
     Dosage: 6CAP PER DAY
     Route: 048
     Dates: start: 20041013
  6. REYATAZ [Concomitant]
     Indication: HIV INFECTION
     Dosage: 300MG PER DAY
     Route: 048
     Dates: start: 20041013
  7. ZITHROMAC [Concomitant]
     Route: 048
     Dates: start: 20041013
  8. ZERIT [Concomitant]
     Indication: HIV INFECTION
     Dosage: 60MG PER DAY
     Route: 048
     Dates: start: 19980214, end: 20041012
  9. PENTAZOCINE LACTATE [Concomitant]
     Dosage: 100MG PER DAY
     Route: 055
     Dates: start: 20040401, end: 20041014
  10. PENTAZOCINE LACTATE [Concomitant]
     Dosage: 100MG PER DAY
     Route: 055
     Dates: start: 20041215
  11. COTRIM [Concomitant]
     Dosage: 9 PER DAY
     Route: 048
     Dates: start: 20041015, end: 20041031
  12. UNKNOWN DRUG [Concomitant]
     Route: 048
     Dates: start: 20041104, end: 20041125

REACTIONS (1)
  - PNEUMOCYSTIS JIROVECI PNEUMONIA [None]
